FAERS Safety Report 7393229-4 (Version None)
Quarter: 2011Q2

REPORT INFORMATION
  Report Type: 
  Country: None (occurrence: None)
  Receive Date: 20110405
  Receipt Date: 20110325
  Transmission Date: 20111010
  Serious: Yes (Life-Threatening)
  Sender: FDA-Public Use
  Company Number: FR-BIOGENIDEC-2010BI042302

PATIENT
  Age: 39 Year
  Sex: Male

DRUGS (7)
  1. TEGRETOL [Concomitant]
  2. ENDOXAN [Concomitant]
  3. TYSABRI [Suspect]
     Indication: MULTIPLE SCLEROSIS
     Route: 042
     Dates: start: 20081124, end: 20090514
  4. LEVOTHYROX [Concomitant]
  5. PROZAC [Concomitant]
  6. RIVOTRIL [Concomitant]
  7. BACLOFEN [Concomitant]

REACTIONS (1)
  - ROAD TRAFFIC ACCIDENT [None]
